FAERS Safety Report 7620044-6 (Version None)
Quarter: 2011Q3

REPORT INFORMATION
  Report Type: 
  Country: None (occurrence: None)
  Receive Date: 20110719
  Receipt Date: 20110713
  Transmission Date: 20111222
  Serious: Yes (Hospitalization, Other)
  Sender: FDA-Public Use
  Company Number: US-PFIZER INC-2011081104

PATIENT
  Sex: Male

DRUGS (3)
  1. CHANTIX [Suspect]
     Indication: SMOKING CESSATION THERAPY
     Dosage: 1 MG, DAILY
     Dates: start: 20090310, end: 20090407
  2. XANAX [Concomitant]
     Indication: ANXIETY
     Dosage: UNK
     Dates: start: 20060101, end: 20110101
  3. AMBIEN [Concomitant]
     Dosage: UNK
     Dates: start: 20060101, end: 20110101

REACTIONS (4)
  - MOOD SWINGS [None]
  - SYNCOPE [None]
  - INSOMNIA [None]
  - CONVULSION [None]
